FAERS Safety Report 24335389 (Version 1)
Quarter: 2024Q3

REPORT INFORMATION
  Report Type: Spontaneous
  Country: DE (occurrence: DE)
  Receive Date: 20240918
  Receipt Date: 20240918
  Transmission Date: 20241016
  Serious: Yes (Other)
  Sender: ALKEM
  Company Number: None

PATIENT
  Age: 47 Year
  Sex: Female

DRUGS (2)
  1. MYCOPHENOLATE MOFETIL [Interacting]
     Active Substance: MYCOPHENOLATE MOFETIL
     Indication: Psoriasis
     Dosage: 2 GRAM, QD
     Route: 065
  2. TABLOID [Interacting]
     Active Substance: THIOGUANINE
     Indication: Psoriasis
     Dosage: 160 MILLIGRAM, QD
     Route: 048

REACTIONS (26)
  - Hepatic cirrhosis [Recovered/Resolved]
  - Venoocclusive liver disease [Recovered/Resolved]
  - Ascites [Recovered/Resolved]
  - Blood bilirubin increased [Recovered/Resolved]
  - Hepatomegaly [Recovered/Resolved]
  - Abdominal distension [Recovered/Resolved]
  - Jaundice [Recovered/Resolved]
  - Blood albumin decreased [Recovered/Resolved]
  - Hepatic fibrosis [Recovered/Resolved]
  - Obesity [Recovered/Resolved]
  - Blood alkaline phosphatase increased [Recovered/Resolved]
  - Bone marrow failure [Recovered/Resolved]
  - Pancytopenia [Recovered/Resolved]
  - Haemoglobin decreased [Recovered/Resolved]
  - White blood cell count decreased [Recovered/Resolved]
  - Abdominal pain [Recovered/Resolved]
  - Aspartate aminotransferase increased [Recovered/Resolved]
  - Nausea [Recovered/Resolved]
  - Oedema peripheral [Recovered/Resolved]
  - Alanine aminotransferase increased [Recovered/Resolved]
  - Platelet count decreased [Recovered/Resolved]
  - Abdominal pain upper [Recovered/Resolved]
  - Vomiting [Recovered/Resolved]
  - Hepatitis [Recovered/Resolved]
  - Myelosuppression [Unknown]
  - Lipoma [Unknown]

NARRATIVE: CASE EVENT DATE: 19990801
